FAERS Safety Report 12803804 (Version 2)
Quarter: 2016Q4

REPORT INFORMATION
  Report Type: Spontaneous
  Country: UA (occurrence: UA)
  Receive Date: 20161003
  Receipt Date: 20161017
  Transmission Date: 20170207
  Serious: Yes (Hospitalization)
  Sender: FDA-Public Use
  Company Number: UA-SA-2016SA177874

PATIENT
  Age: 29 Year
  Sex: Female
  Weight: 60 kg

DRUGS (8)
  1. ZINKIT [Concomitant]
     Indication: TYPE 1 DIABETES MELLITUS
     Dates: start: 20160905, end: 20160920
  2. ACTRAPID [Concomitant]
     Active Substance: INSULIN HUMAN
     Indication: TYPE 1 DIABETES MELLITUS
     Route: 058
     Dates: start: 20140924
  3. THIOCTACID [Concomitant]
     Active Substance: THIOCTIC ACID
     Indication: TYPE 1 DIABETES MELLITUS
     Dates: start: 20160905, end: 20160920
  4. TOUJEO [Suspect]
     Active Substance: INSULIN GLARGINE
     Indication: TYPE 1 DIABETES MELLITUS
     Dosage: DOSE:14 UNIT(S)
     Route: 058
     Dates: start: 20160905
  5. PROTAPHANE [Concomitant]
     Active Substance: INSULIN HUMAN
     Indication: TYPE 1 DIABETES MELLITUS
     Route: 058
     Dates: start: 20140924
  6. TOUJEO [Suspect]
     Active Substance: INSULIN GLARGINE
     Indication: TYPE 1 DIABETES MELLITUS
     Dosage: DOSE:20 UNIT(S)
     Route: 058
     Dates: start: 201609, end: 20160912
  7. TIVORTIN [Concomitant]
     Indication: TYPE 1 DIABETES MELLITUS
     Dates: start: 20160905, end: 20160920
  8. SOLOSTAR [Concomitant]
     Active Substance: DEVICE

REACTIONS (3)
  - Drug ineffective [Unknown]
  - Blood glucose increased [Recovered/Resolved]
  - Acetonaemia [Recovered/Resolved]

NARRATIVE: CASE EVENT DATE: 20160905
